FAERS Safety Report 10192771 (Version 1)
Quarter: 2014Q2

REPORT INFORMATION
  Report Type: Spontaneous
  Country: US (occurrence: US)
  Receive Date: 20140523
  Receipt Date: 20140523
  Transmission Date: 20141212
  Serious: No
  Sender: FDA-Public Use
  Company Number: US-PFIZER INC-2014140881

PATIENT
  Age: 59 Year
  Sex: Female
  Weight: 62.59 kg

DRUGS (2)
  1. CHANTIX [Suspect]
     Indication: SMOKING CESSATION THERAPY
     Dosage: 1 MG, 2X/DAY
     Dates: start: 20131223
  2. AMITRIPTYLINE [Concomitant]
     Dosage: 150 MG, DAILY

REACTIONS (2)
  - Therapeutic response changed [Unknown]
  - Pre-existing condition improved [Unknown]
